FAERS Safety Report 21147628 (Version 1)
Quarter: 2022Q3

REPORT INFORMATION
  Report Type: Spontaneous
  Country: CN (occurrence: None)
  Receive Date: 20220729
  Receipt Date: 20220729
  Transmission Date: 20221027
  Serious: Yes (Other)
  Sender: FDA-Public Use
  Company Number: CN-ROCHE-3148931

PATIENT
  Age: 40 Year
  Sex: Male

DRUGS (28)
  1. MABTHERA [Suspect]
     Active Substance: RITUXIMAB
     Indication: Diffuse large B-cell lymphoma
     Route: 065
     Dates: start: 202008, end: 202010
  2. MABTHERA [Suspect]
     Active Substance: RITUXIMAB
     Route: 065
     Dates: start: 202010, end: 202011
  3. MABTHERA [Suspect]
     Active Substance: RITUXIMAB
     Route: 065
     Dates: start: 202011, end: 202101
  4. MABTHERA [Suspect]
     Active Substance: RITUXIMAB
     Route: 065
     Dates: start: 202110, end: 202111
  5. GAZYVA [Suspect]
     Active Substance: OBINUTUZUMAB
     Indication: Diffuse large B-cell lymphoma
     Route: 042
     Dates: start: 202111, end: 202112
  6. GAZYVA [Suspect]
     Active Substance: OBINUTUZUMAB
     Route: 042
     Dates: start: 20210107, end: 202103
  7. GAZYVA [Suspect]
     Active Substance: OBINUTUZUMAB
     Route: 042
     Dates: start: 202203, end: 202204
  8. GAZYVA [Suspect]
     Active Substance: OBINUTUZUMAB
     Route: 042
     Dates: start: 202205, end: 202206
  9. CYCLOPHOSPHAMIDE [Concomitant]
     Active Substance: CYCLOPHOSPHAMIDE
     Indication: Diffuse large B-cell lymphoma
     Dates: start: 202008, end: 202010
  10. CYCLOPHOSPHAMIDE [Concomitant]
     Active Substance: CYCLOPHOSPHAMIDE
     Dates: start: 202010, end: 202011
  11. CYCLOPHOSPHAMIDE [Concomitant]
     Active Substance: CYCLOPHOSPHAMIDE
     Dates: start: 202011, end: 202101
  12. CYCLOPHOSPHAMIDE [Concomitant]
     Active Substance: CYCLOPHOSPHAMIDE
     Dates: start: 202110, end: 202111
  13. DOXORUBICIN [Concomitant]
     Active Substance: DOXORUBICIN
     Indication: Diffuse large B-cell lymphoma
     Dates: start: 202008, end: 202010
  14. DOXORUBICIN [Concomitant]
     Active Substance: DOXORUBICIN
     Dates: start: 202010, end: 202011
  15. DOXORUBICIN [Concomitant]
     Active Substance: DOXORUBICIN
     Dosage: 2020.11-2021.1
     Dates: start: 202011, end: 202101
  16. VINCRISTINE [Concomitant]
     Active Substance: VINCRISTINE
     Indication: Diffuse large B-cell lymphoma
     Dates: start: 202008, end: 202010
  17. VINCRISTINE [Concomitant]
     Active Substance: VINCRISTINE
     Dates: start: 202010, end: 202011
  18. VINCRISTINE [Concomitant]
     Active Substance: VINCRISTINE
     Dosage: 2020.11-2021.1
     Dates: start: 202011, end: 202101
  19. PREDNISONE [Concomitant]
     Active Substance: PREDNISONE
     Indication: Diffuse large B-cell lymphoma
     Dates: start: 202008, end: 202010
  20. PREDNISONE [Concomitant]
     Active Substance: PREDNISONE
     Dates: start: 202010, end: 202011
  21. PREDNISONE [Concomitant]
     Active Substance: PREDNISONE
     Dates: start: 202011, end: 202101
  22. LENALIDOMIDE [Concomitant]
     Active Substance: LENALIDOMIDE
     Indication: Diffuse large B-cell lymphoma
     Dates: start: 202104, end: 202110
  23. CARBOPLATIN [Concomitant]
     Active Substance: CARBOPLATIN
     Indication: Diffuse large B-cell lymphoma
     Dates: start: 202110, end: 202111
  24. ETOPOSIDE [Concomitant]
     Active Substance: ETOPOSIDE
     Indication: Diffuse large B-cell lymphoma
     Dates: start: 202110, end: 202111
  25. RECOMBINANT HUMAN THROMBOPOIETIN INJECTION (CHO CELL) (UNK INGREDIENTS [Concomitant]
     Indication: Platelet count decreased
     Dates: start: 202110, end: 202111
  26. RECOMBINANT HUMAN THROMBOPOIETIN INJECTION (CHO CELL) (UNK INGREDIENTS [Concomitant]
     Indication: Platelet count decreased
     Dates: start: 202110, end: 202111
  27. GEMCITABINE [Concomitant]
     Active Substance: GEMCITABINE
     Indication: Diffuse large B-cell lymphoma
     Dates: start: 202111, end: 202112
  28. OXALIPLATIN [Concomitant]
     Active Substance: OXALIPLATIN
     Indication: Diffuse large B-cell lymphoma
     Dates: start: 202111, end: 202112

REACTIONS (2)
  - Myelosuppression [Unknown]
  - Off label use [Unknown]
